FAERS Safety Report 12126802 (Version 1)
Quarter: 2016Q1

REPORT INFORMATION
  Report Type: Spontaneous
  Country: US (occurrence: US)
  Receive Date: 20160229
  Receipt Date: 20160229
  Transmission Date: 20160526
  Serious: Yes (Other)
  Sender: FDA-Public Use
  Company Number: US-CIPLA LTD.-2016US01493

PATIENT

DRUGS (2)
  1. BICALUTAMIDE. [Suspect]
     Active Substance: BICALUTAMIDE
     Indication: TESTOTOXICOSIS
     Dosage: 12.5, OR 25, OR 50, OR 100 MG ONCE DAILY FOR 12 MONTHS
     Route: 048
  2. ANASTROZOLE. [Suspect]
     Active Substance: ANASTROZOLE
     Indication: TESTOTOXICOSIS
     Dosage: 0.5 OR 1 MG ONCE DAILY FOR 12 MONTHS
     Route: 065

REACTIONS (1)
  - Gynaecomastia [Not Recovered/Not Resolved]
